FAERS Safety Report 6717943 (Version 5)
Quarter: 2025Q3

REPORT INFORMATION
  Report Type: Spontaneous
  Country: EU (occurrence: EU)
  Receive Date: 20080804
  Receipt Date: 20250924
  Transmission Date: 20251020
  Serious: Yes (Death, Hospitalization)
  Sender: NOVARTIS
  Company Number: PHBS2008NL05232

PATIENT
  Age: 3 Year
  Sex: Male

DRUGS (4)
  1. CYCLOSPORINE [Suspect]
     Active Substance: CYCLOSPORINE
     Indication: Graft versus host disease in gastrointestinal tract
     Route: 065
  2. CYCLOSPORINE [Suspect]
     Active Substance: CYCLOSPORINE
     Indication: Graft versus host disease in skin
  3. PREDNISOLONE [Suspect]
     Active Substance: PREDNISOLONE
     Indication: Graft versus host disease in gastrointestinal tract
     Route: 065
  4. PREDNISOLONE [Suspect]
     Active Substance: PREDNISOLONE
     Indication: Graft versus host disease in skin

REACTIONS (12)
  - Chronic graft versus host disease [Fatal]
  - Febrile neutropenia [Unknown]
  - Epstein-Barr virus associated lymphoproliferative disorder [Recovering/Resolving]
  - Post transplant lymphoproliferative disorder [Recovering/Resolving]
  - Mediastinal mass [Recovered/Resolved]
  - Pneumomediastinum [Recovered/Resolved]
  - Subcutaneous emphysema [Recovering/Resolving]
  - Dyspnoea [Unknown]
  - Tachypnoea [Unknown]
  - Epstein-Barr virus infection [Recovered/Resolved]
  - Lymphoma [Unknown]
  - Febrile neutropenia [Unknown]
